FAERS Safety Report 8897263 (Version 1)
Quarter: 2012Q4

REPORT INFORMATION
  Report Type: 
  Country: US (occurrence: US)
  Receive Date: 20121108
  Receipt Date: 20121108
  Transmission Date: 20130627
  Serious: No
  Sender: FDA-Public Use
  Company Number: US-AMGEN-USASP2012029267

PATIENT
  Age: 63 Year
  Sex: Female
  Weight: 72.56 kg

DRUGS (9)
  1. ENBREL [Suspect]
     Indication: PRODUCT USED FOR UNKNOWN INDICATION
     Dosage: 50 mg, qwk
     Route: 058
  2. LIVALO [Concomitant]
     Dosage: 2 mg, UNK
  3. MELOXICAM [Concomitant]
     Dosage: 7.5 mg, UNK
  4. METHOTREXATE [Concomitant]
     Dosage: 2.5 mg, UNK
  5. VALIUM                             /00017001/ [Concomitant]
     Dosage: 2 mg, UNK
  6. PRILOSEC                           /00661201/ [Concomitant]
     Dosage: 40 mg, UNK
  7. HYDROCODONE W/APAP                 /00607101/ [Concomitant]
  8. FISH OIL [Concomitant]
     Dosage: 1000 mg, UNK
  9. CALCIUM W/VITAMIN D                /00188401/ [Concomitant]

REACTIONS (2)
  - Fatigue [Unknown]
  - Rash macular [Unknown]
